FAERS Safety Report 24764391 (Version 2)
Quarter: 2025Q1

REPORT INFORMATION
  Report Type: Report from Study
  Country: US (occurrence: US)
  Receive Date: 20241223
  Receipt Date: 20250118
  Transmission Date: 20250409
  Serious: Yes (Death, Other)
  Sender: TAKEDA
  Company Number: US-TAKEDA-2024TUS124318

PATIENT
  Age: 52 Year
  Sex: Male

DRUGS (1)
  1. MARIBAVIR [Suspect]
     Active Substance: MARIBAVIR
     Indication: Cytomegalovirus infection
     Dosage: 400 MILLIGRAM, BID
     Dates: start: 20241111

REACTIONS (4)
  - Death [Fatal]
  - Aplastic anaemia [Unknown]
  - Drug ineffective [Unknown]
  - Hypophagia [Unknown]

NARRATIVE: CASE EVENT DATE: 20241230
